FAERS Safety Report 4554273-5 (Version None)
Quarter: 2005Q1

REPORT INFORMATION
  Report Type: 
  Country: None (occurrence: None)
  Receive Date: 20050118
  Receipt Date: 20020227
  Transmission Date: 20050727
  Serious: Yes (Hospitalization)
  Sender: FDA-Public Use
  Company Number: US-GLAXOSMITHKLINE-A0360951A

PATIENT
  Age: 79 Year
  Sex: Female

DRUGS (13)
  1. LOTRONEX [Suspect]
     Indication: IRRITABLE BOWEL SYNDROME
     Dosage: 1MG TWICE PER DAY
     Route: 048
     Dates: start: 20000601, end: 20000801
  2. ASACOL [Concomitant]
  3. AMITRIPTYLINE [Concomitant]
  4. IMODIUM [Concomitant]
  5. SOTALOL HCL [Concomitant]
  6. DIGOXIN [Concomitant]
  7. CALCIUM CARBONATE [Concomitant]
  8. ASPIRIN [Concomitant]
  9. PREDNISONE [Concomitant]
  10. K-DUR 10 [Concomitant]
  11. LOVENOX [Concomitant]
  12. LASIX [Concomitant]
  13. AMIODARONE [Concomitant]

REACTIONS (13)
  - ATRIAL FIBRILLATION [None]
  - CARDIAC FAILURE CONGESTIVE [None]
  - COLITIS ULCERATIVE [None]
  - CONSTIPATION [None]
  - DYSPNOEA [None]
  - HAEMATOCRIT DECREASED [None]
  - HEART RATE INCREASED [None]
  - HEPATIC LESION [None]
  - OEDEMA PERIPHERAL [None]
  - PYREXIA [None]
  - RECTAL HAEMORRHAGE [None]
  - RED BLOOD CELL SEDIMENTATION RATE INCREASED [None]
  - URINARY TRACT INFECTION [None]
